FAERS Safety Report 4984265-3 (Version None)
Quarter: 2006Q2

REPORT INFORMATION
  Report Type: 
  Country: None (occurrence: None)
  Receive Date: 20060420
  Receipt Date: 20060404
  Transmission Date: 20061013
  Serious: Yes (Hospitalization)
  Sender: FDA-Public Use
  Company Number: DSA_27983_2006

PATIENT
  Age: 83 Year
  Sex: Female

DRUGS (6)
  1. ENALAPRIL MALEATE AND HYDROCHLOROTHIAZIDE [Suspect]
     Indication: HYPERTENSION
     Dosage: DF Q DAY PO
     Route: 048
     Dates: start: 20000101, end: 20060214
  2. AMLODIPINE MESYLATE [Concomitant]
  3. CELIPROLOL HYDROCHLORIDE [Concomitant]
  4. CLOPIDOGREL BISULFATE [Concomitant]
  5. IMATINIB MESYLATE [Concomitant]
  6. NITROGLYCERIN [Concomitant]

REACTIONS (3)
  - ASTHENIA [None]
  - HYPONATRAEMIA [None]
  - INAPPROPRIATE ANTIDIURETIC HORMONE SECRETION [None]
